FAERS Safety Report 4552347-6 (Version None)
Quarter: 2005Q1

REPORT INFORMATION
  Report Type: 
  Country: None (occurrence: None)
  Receive Date: 20050114
  Receipt Date: 20040216
  Transmission Date: 20050727
  Serious: No
  Sender: FDA-Public Use
  Company Number: US-GLAXOSMITHKLINE-A0498365A

PATIENT
  Age: 29 Year
  Sex: Female
  Weight: 124.5 kg

DRUGS (1)
  1. IMITREX [Suspect]
     Indication: ILL-DEFINED DISORDER
     Dosage: 6MG UNKNOWN
     Route: 058

REACTIONS (9)
  - FOREIGN BODY TRAUMA [None]
  - HEADACHE [None]
  - INJECTION SITE ERYTHEMA [None]
  - INJECTION SITE HAEMORRHAGE [None]
  - INJECTION SITE PRURITUS [None]
  - INJECTION SITE SWELLING [None]
  - MIGRAINE [None]
  - PHARMACEUTICAL PRODUCT COMPLAINT [None]
  - URTICARIA [None]
